FAERS Safety Report 11752772 (Version 1)
Quarter: 2015Q4

REPORT INFORMATION
  Report Type: Other
  Country: JP (occurrence: JP)
  Receive Date: 20151119
  Receipt Date: 20151119
  Transmission Date: 20160304
  Serious: Yes (Other)
  Sender: FDA-Public Use
  Company Number: JP-LUPIN PHARMACEUTICALS INC.-2015-02621

PATIENT
  Age: 54 Year
  Sex: Male

DRUGS (2)
  1. QUETIAPINE TABLET 100 MG ^AMEL^ [Suspect]
     Active Substance: QUETIAPINE
     Indication: PRODUCT USED FOR UNKNOWN INDICATION
     Route: 065
     Dates: start: 201408, end: 201411
  2. QUETIAPINE TABLET 25MG ^AMEL^ [Suspect]
     Active Substance: QUETIAPINE
     Indication: PRODUCT USED FOR UNKNOWN INDICATION
     Route: 065
     Dates: start: 201409, end: 201409

REACTIONS (1)
  - Hypercreatinaemia [Unknown]
